FAERS Safety Report 19927991 (Version 5)
Quarter: 2025Q2

REPORT INFORMATION
  Report Type: Spontaneous
  Country: NL (occurrence: NL)
  Receive Date: 20211007
  Receipt Date: 20250623
  Transmission Date: 20250716
  Serious: Yes (Hospitalization, Other)
  Sender: AUROBINDO
  Company Number: NL-PENSA-202102755

PATIENT
  Age: 80 Year
  Sex: Male

DRUGS (8)
  1. OMEPRAZOLE [Suspect]
     Active Substance: OMEPRAZOLE
     Indication: Product used for unknown indication
     Dosage: 40 MILLIGRAM, ONCE A DAY
     Route: 065
  2. PANTOPRAZOLE [Suspect]
     Active Substance: PANTOPRAZOLE
     Indication: Product used for unknown indication
     Route: 065
  3. AMIODARONE [Concomitant]
     Active Substance: AMIODARONE
     Indication: Atrial fibrillation
     Dosage: 40 MILLIGRAM, ONCE A DAY
     Route: 065
  4. AMIODARONE [Concomitant]
     Active Substance: AMIODARONE
     Dosage: 200 MILLIGRAM (200 MG, QD)
     Route: 065
  5. NEBIVOLOL [Concomitant]
     Active Substance: NEBIVOLOL
     Indication: Cardiac failure
     Dosage: 5 MILLIGRAM, ONCE A DAY
     Route: 065
  6. ACENOCOUMAROL [Concomitant]
     Active Substance: ACENOCOUMAROL
     Indication: Product used for unknown indication
     Route: 065
  7. FUROSEMIDE [Concomitant]
     Active Substance: FUROSEMIDE
     Indication: Product used for unknown indication
     Dosage: 40 MILLIGRAM, ONCE A DAY
     Route: 065
  8. LISINOPRIL [Concomitant]
     Active Substance: LISINOPRIL
     Indication: Product used for unknown indication
     Route: 065

REACTIONS (4)
  - Nephropathy toxic [Recovering/Resolving]
  - Renal impairment [Unknown]
  - Renal failure [Recovering/Resolving]
  - Toxicity to various agents [Recovering/Resolving]
